FAERS Safety Report 20384511 (Version 1)
Quarter: 2022Q1

REPORT INFORMATION
  Report Type: Spontaneous
  Country: US (occurrence: US)
  Receive Date: 20220127
  Receipt Date: 20220127
  Transmission Date: 20220423
  Serious: No
  Sender: FDA-Public Use
  Company Number: US-ALLERGAN-2113329US

PATIENT

DRUGS (2)
  1. BOTOX COSMETIC [Suspect]
     Active Substance: ONABOTULINUMTOXINA
     Indication: Product used for unknown indication
     Dosage: 80 UNITS, SINGLE
     Dates: start: 20210205, end: 20210205
  2. BOTOX COSMETIC [Suspect]
     Active Substance: ONABOTULINUMTOXINA
     Dosage: 23 UNITS, SINGLE
     Dates: start: 20210223, end: 20210223

REACTIONS (3)
  - Multiple use of single-use product [Unknown]
  - Product preparation issue [Unknown]
  - Drug ineffective [Unknown]
